FAERS Safety Report 6319168-5 (Version None)
Quarter: 2009Q3

REPORT INFORMATION
  Report Type: 
  Country: None (occurrence: None)
  Receive Date: 20090821
  Receipt Date: 20080811
  Transmission Date: 20100115
  Serious: No
  Sender: FDA-Public Use
  Company Number: US-ABBOTT-08P-163-0469814-00

PATIENT
  Sex: Female
  Weight: 61.29 kg

DRUGS (4)
  1. NIASPAN [Suspect]
     Indication: BLOOD TRIGLYCERIDES INCREASED
     Route: 048
     Dates: start: 20080501, end: 20080601
  2. NIASPAN [Suspect]
     Route: 048
     Dates: start: 20080601, end: 20080701
  3. ASPIRIN [Concomitant]
     Indication: PROPHYLAXIS
     Route: 048
     Dates: start: 20080501
  4. CLOPIDOGREL [Concomitant]
     Indication: STENT PLACEMENT
     Route: 048
     Dates: start: 20080201

REACTIONS (6)
  - ABDOMINAL PAIN UPPER [None]
  - DIARRHOEA [None]
  - EXCORIATION [None]
  - GASTROINTESTINAL PAIN [None]
  - PARAESTHESIA [None]
  - RASH [None]
